FAERS Safety Report 22074680 (Version 2)
Quarter: 2023Q1

REPORT INFORMATION
  Report Type: Spontaneous
  Country: US (occurrence: US)
  Receive Date: 20230308
  Receipt Date: 20230310
  Transmission Date: 20230417
  Serious: No
  Sender: FDA-Public Use
  Company Number: US-PFIZER INC-PV202300044240

PATIENT
  Age: 19 Year
  Sex: Female

DRUGS (5)
  1. EUCRISA [Suspect]
     Active Substance: CRISABOROLE
     Indication: Eczema
     Dosage: UNK
     Route: 061
  2. RINVOQ [Suspect]
     Active Substance: UPADACITINIB
     Dosage: UNK
  3. ELIDEL [Suspect]
     Active Substance: PIMECROLIMUS
     Dosage: UNK
  4. CLOBETASOL PROPIONATE [Suspect]
     Active Substance: CLOBETASOL PROPIONATE
     Dosage: UNK
  5. TRIAMCINOLONE ACETONIDE [Suspect]
     Active Substance: TRIAMCINOLONE ACETONIDE

REACTIONS (4)
  - Drug ineffective [Unknown]
  - Irritability [Unknown]
  - Burning sensation [Unknown]
  - Off label use [Unknown]
